FAERS Safety Report 5420370-5 (Version None)
Quarter: 2007Q3

REPORT INFORMATION
  Report Type: 
  Country: None (occurrence: None)
  Receive Date: 20070816
  Receipt Date: 20070803
  Transmission Date: 20080115
  Serious: Yes (Disabling, Other)
  Sender: FDA-Public Use
  Company Number: 17175

PATIENT
  Age: 16 Year
  Sex: Male

DRUGS (6)
  1. LEUCOVORIN CALCIUM [Suspect]
     Indication: NASOPHARYNGEAL CANCER STAGE III
     Dosage: 25 MG/M2 PER_CYCLE
  2. METHOTREXATE [Suspect]
     Indication: NASOPHARYNGEAL CANCER STAGE III
     Dosage: 120 MG/M2 PER_CYCLE
  3. CISPLATIN [Suspect]
     Indication: NASOPHARYNGEAL CANCER STAGE III
     Dosage: 100 MG/M2 PER_CYCLE
  4. FLUOROURACIL [Suspect]
     Indication: NASOPHARYNGEAL CANCER STAGE III
     Dosage: 1000 MG/M2 PER_CYCLE
  5. INTENSITY-MODULATED RADIOTHERAPY [Suspect]
     Indication: NASOPHARYNGEAL CANCER STAGE III
     Dosage: MG/M2 PER_CYCLE
  6. EBV-CYTOTOXIC T-LYMPHOCYTES [Concomitant]

REACTIONS (8)
  - BLOOD LUTEINISING HORMONE DECREASED [None]
  - DISEASE PROGRESSION [None]
  - DRUG TOXICITY [None]
  - DRY MOUTH [None]
  - HYPOTHYROIDISM [None]
  - MYOPIA [None]
  - OTORRHOEA [None]
  - PSYCHOTIC DISORDER [None]
